FAERS Safety Report 4561084-3 (Version None)
Quarter: 2005Q1

REPORT INFORMATION
  Report Type: 
  Country: None (occurrence: None)
  Receive Date: 20050126
  Receipt Date: 20041206
  Transmission Date: 20050727
  Serious: No
  Sender: FDA-Public Use
  Company Number: US-BRISTOL-MYERS SQUIBB COMPANY-12785424

PATIENT
  Age: 42 Year
  Sex: Female
  Weight: 98 kg

DRUGS (8)
  1. GLUCOPHAGE [Suspect]
     Indication: BLOOD GLUCOSE INCREASED
     Dosage: THERAPY STOPPED ON 27-NOV-2004 AND RESTARTED ON 02-DEC-2004
     Route: 048
     Dates: start: 20040827
  2. MEDROL [Suspect]
     Dates: start: 20041123, end: 20041128
  3. PREVACID [Concomitant]
  4. AVAPRO [Concomitant]
  5. CATAPRES [Concomitant]
  6. BENADRYL [Concomitant]
  7. RITALIN [Concomitant]
  8. KEFLEX [Concomitant]

REACTIONS (5)
  - DEHYDRATION [None]
  - DIARRHOEA [None]
  - MUSCLE SPASMS [None]
  - NAUSEA [None]
  - NEPHROLITHIASIS [None]
